FAERS Safety Report 25735766 (Version 1)
Quarter: 2025Q3

REPORT INFORMATION
  Report Type: Spontaneous
  Country: US (occurrence: US)
  Receive Date: 20250828
  Receipt Date: 20250828
  Transmission Date: 20251021
  Serious: Yes (Other)
  Sender: SANOFI AVENTIS
  Company Number: US-SA-2025SA257173

PATIENT
  Age: 78 Year
  Sex: Female

DRUGS (1)
  1. DUPIXENT [Suspect]
     Active Substance: DUPILUMAB
     Indication: Eosinophilic oesophagitis
     Dosage: 300 MG, QW
     Route: 058

REACTIONS (7)
  - Intestinal obstruction [Unknown]
  - Choking [Not Recovered/Not Resolved]
  - Eructation [Unknown]
  - Abdominal pain upper [Unknown]
  - Infrequent bowel movements [Unknown]
  - Lip ulceration [Recovered/Resolved]
  - Oral herpes [Recovered/Resolved]
